FAERS Safety Report 5381241-6 (Version None)
Quarter: 2007Q3

REPORT INFORMATION
  Report Type: 
  Country: None (occurrence: None)
  Receive Date: 20070706
  Receipt Date: 20070625
  Transmission Date: 20080115
  Serious: Yes (Other)
  Sender: FDA-Public Use
  Company Number: ES-PFIZER INC-2007053663

PATIENT
  Age: 42 Year
  Sex: Female

DRUGS (1)
  1. CHAMPIX [Suspect]
     Indication: SMOKING CESSATION THERAPY
     Dosage: FREQ:EVERY DAY
     Route: 048
     Dates: start: 20070601, end: 20070601

REACTIONS (3)
  - ASTHENIA [None]
  - CYCLOPLEGIA [None]
  - NAUSEA [None]
